FAERS Safety Report 9177344 (Version 2)
Quarter: 2013Q2

REPORT INFORMATION
  Report Type: Spontaneous
  Country: US (occurrence: US)
  Receive Date: 20130321
  Receipt Date: 20130508
  Transmission Date: 20140414
  Serious: Yes (Hospitalization)
  Sender: FDA-Public Use
  Company Number: US-PERRIGO-13US002630

PATIENT
  Age: 1 Year
  Sex: Female
  Weight: 10.88 kg

DRUGS (1)
  1. ACETAMINOPHEN CHERRY DYE FREE 32 MG/ML 590 [Suspect]
     Indication: PYREXIA
     Dosage: 3.75 ML, SINGLE
     Route: 048
     Dates: start: 20130228, end: 20130228

REACTIONS (5)
  - Febrile convulsion [Recovered/Resolved]
  - Condition aggravated [Recovered/Resolved]
  - Unresponsive to stimuli [Recovered/Resolved]
  - Staring [Recovered/Resolved]
  - Lip injury [Unknown]
